FAERS Safety Report 21239025 (Version 2)
Quarter: 2022Q3

REPORT INFORMATION
  Report Type: Report from Study
  Country: FR (occurrence: FR)
  Receive Date: 20220822
  Receipt Date: 20220909
  Transmission Date: 20221026
  Serious: No
  Sender: FDA-Public Use
  Company Number: FR-ROCHE-3155545

PATIENT
  Sex: Female
  Weight: 38 kg

DRUGS (4)
  1. CARBOPLATIN [Suspect]
     Active Substance: CARBOPLATIN
     Dosage: 220 MG
     Route: 042
     Dates: start: 20210617
  2. GEMCITABINE HYDROCHLORIDE [Suspect]
     Active Substance: GEMCITABINE HYDROCHLORIDE
     Dosage: 780 MG
     Route: 042
     Dates: start: 20210617
  3. ATEZOLIZUMAB [Suspect]
     Active Substance: ATEZOLIZUMAB
     Indication: Ovarian cancer recurrent
     Dosage: 1200 MG
     Route: 042
     Dates: start: 20210617, end: 20220504
  4. NIRAPARIB [Suspect]
     Active Substance: NIRAPARIB
     Indication: Ovarian cancer recurrent
     Dosage: 200 MG
     Route: 048
     Dates: start: 20211202, end: 20220527

REACTIONS (1)
  - Hypothyroidism [Not Recovered/Not Resolved]

NARRATIVE: CASE EVENT DATE: 20220525
